FAERS Safety Report 8174474-7 (Version None)
Quarter: 2012Q1

REPORT INFORMATION
  Report Type: 
  Country: None (occurrence: None)
  Receive Date: 20120229
  Receipt Date: 20120221
  Transmission Date: 20120608
  Serious: Yes (Hospitalization)
  Sender: FDA-Public Use
  Company Number: US-BAYER-2011-068270

PATIENT
  Age: 22 Year
  Sex: Female
  Weight: 54.422 kg

DRUGS (5)
  1. PENICILLIN [Concomitant]
     Indication: URINARY TRACT INFECTION
  2. NITROFURANTOIN [Concomitant]
     Indication: URINARY TRACT INFECTION
  3. SULFAMETHOXAZOLE [Concomitant]
     Indication: URINARY TRACT INFECTION
  4. YAZ [Suspect]
     Indication: CONTRACEPTION
     Dosage: UNK
     Route: 048
     Dates: start: 20070917, end: 20080101
  5. PROPOX-N [Concomitant]
     Indication: ANALGESIC THERAPY

REACTIONS (1)
  - DEEP VEIN THROMBOSIS [None]
